FAERS Safety Report 8165234-1 (Version None)
Quarter: 2012Q1

REPORT INFORMATION
  Report Type: 
  Country: None (occurrence: None)
  Receive Date: 20120221
  Receipt Date: 20120216
  Transmission Date: 20120608
  Serious: Yes (Disabling)
  Sender: FDA-Public Use
  Company Number: GER/UKI/12/0023044

PATIENT
  Age: 81 Year
  Sex: Male
  Weight: 81 kg

DRUGS (7)
  1. DOXAZOSIN MESYLATE [Concomitant]
  2. WARFARIN SODIUIM (WARFARIN SODIUM) [Concomitant]
  3. MEBEVERINE HYDROCHLORIDE (MEBEVERINE HYDROCHLORIDE) [Concomitant]
  4. ISPAGHULA HUSK (PLANTAGO OVATA HUSK) [Concomitant]
  5. SOTALOL HCL [Concomitant]
  6. VISCOTEARS (CARBOMER) [Concomitant]
  7. FINASTERIDE [Suspect]
     Indication: PRODUCT USED FOR UNKNOWN INDICATION
     Dates: start: 20111116

REACTIONS (2)
  - URINE FLOW DECREASED [None]
  - URINARY RETENTION [None]
